FAERS Safety Report 8578938-3 (Version None)
Quarter: 2012Q3

REPORT INFORMATION
  Report Type: 
  Country: None (occurrence: None)
  Receive Date: 20120808
  Receipt Date: 20120730
  Transmission Date: 20120928
  Serious: Yes (Other)
  Sender: FDA-Public Use
  Company Number: US-ASTRAZENECA-2012SE53747

PATIENT
  Age: 80 Year
  Sex: Female
  Weight: 56.7 kg

DRUGS (1)
  1. SYMBICORT [Suspect]
     Indication: BRONCHITIS
     Dosage: TWO PUFFS TWO TIMES A DAY
     Route: 055
     Dates: start: 20120401

REACTIONS (4)
  - SPINAL FRACTURE [None]
  - DYSPHONIA [None]
  - STRESS FRACTURE [None]
  - COUGH [None]
